FAERS Safety Report 10684281 (Version 1)
Quarter: 2014Q4

REPORT INFORMATION
  Report Type: Spontaneous
  Country: FR (occurrence: FR)
  Receive Date: 20141231
  Receipt Date: 20141231
  Transmission Date: 20150529
  Serious: Yes (Hospitalization)
  Sender: FDA-Public Use
  Company Number: FR-BIOGENIDEC-2014BI135917

PATIENT
  Age: 37 Year
  Sex: Female

DRUGS (3)
  1. TECFIDERA [Suspect]
     Active Substance: DIMETHYL FUMARATE
     Indication: RELAPSING-REMITTING MULTIPLE SCLEROSIS
     Route: 048
  2. CARDEGIC [Concomitant]
     Indication: FLUSHING
  3. INIXIUM [Concomitant]

REACTIONS (4)
  - Haematemesis [Unknown]
  - Mallory-Weiss syndrome [Unknown]
  - Gastric haemorrhage [Unknown]
  - Vomiting [Unknown]
